FAERS Safety Report 4519484-3 (Version None)
Quarter: 2004Q4

REPORT INFORMATION
  Report Type: 
  Country: None (occurrence: None)
  Receive Date: 20041202
  Receipt Date: 20041117
  Transmission Date: 20050328
  Serious: Yes (Hospitalization)
  Sender: FDA-Public Use
  Company Number: 2004GB02758

PATIENT
  Age: 65 Year
  Sex: Male

DRUGS (8)
  1. GEFITINIB [Suspect]
     Indication: NON-SMALL CELL LUNG CANCER
     Dosage: 250 MG PO
     Route: 048
     Dates: start: 20041018, end: 20041116
  2. RADIOTHERAPY [Suspect]
     Indication: NON-SMALL CELL LUNG CANCER
  3. DICLOFENAC [Concomitant]
  4. CO-COMADOL [Concomitant]
  5. ASTATINE [Concomitant]
  6. ASPIRIN [Concomitant]
  7. HALOPERIDOL [Concomitant]
  8. QUININE SULPHATE [Concomitant]

REACTIONS (10)
  - ACNE [None]
  - ANOREXIA [None]
  - DIARRHOEA [None]
  - FLUID INTAKE REDUCED [None]
  - LETHARGY [None]
  - NAUSEA [None]
  - ODYNOPHAGIA [None]
  - RASH [None]
  - STOMATITIS [None]
  - VOMITING [None]
